FAERS Safety Report 7829604-0 (Version None)
Quarter: 2011Q4

REPORT INFORMATION
  Report Type: 
  Country: None (occurrence: None)
  Receive Date: 20111020
  Receipt Date: 20111003
  Transmission Date: 20120403
  Serious: Yes (Death, Other)
  Sender: FDA-Public Use
  Company Number: PHEH2011US04960

PATIENT
  Sex: Male

DRUGS (10)
  1. TRICYCLIC ANTIDEPRESSANTS [Concomitant]
  2. ROPINIROLE [Concomitant]
     Dosage: 1 MG,
  3. PLAVIX [Concomitant]
     Dosage: 75 MG, QD
  4. FLUOXETINE [Concomitant]
     Dosage: 20 MG, QD
  5. NITROGLYCERIN [Concomitant]
     Dosage: 6.5 MG, BID
  6. ANTIARRHYTHMICS [Concomitant]
  7. AMIODARONE HCL [Concomitant]
     Dosage: 200 MG, 30 YEARS
  8. ALLOPURINOL [Concomitant]
     Dosage: 100 MG, QD
  9. METOPROLOL TARTRATE [Concomitant]
     Dosage: 25 MG, BID
  10. RECLAST [Suspect]
     Dosage: 5 MG, YEARLY
     Route: 042
     Dates: start: 20100101

REACTIONS (8)
  - DEATH [None]
  - TERMINAL STATE [None]
  - OXYGEN SATURATION DECREASED [None]
  - BLOOD PRESSURE DIASTOLIC DECREASED [None]
  - THROAT IRRITATION [None]
  - HEART RATE INCREASED [None]
  - RESPIRATORY TRACT CONGESTION [None]
  - BACK PAIN [None]
